FAERS Safety Report 23788725 (Version 1)
Quarter: 2024Q2

REPORT INFORMATION
  Report Type: Spontaneous
  Country: PL (occurrence: PL)
  Receive Date: 20240426
  Receipt Date: 20240426
  Transmission Date: 20240716
  Serious: Yes (Other)
  Sender: FDA-Public Use
  Company Number: PL-002147023-NVSC2024PL084789

PATIENT

DRUGS (2)
  1. DABRAFENIB [Suspect]
     Active Substance: DABRAFENIB
     Indication: Product used for unknown indication
     Dosage: 150 MG, BID
     Route: 065
     Dates: start: 201903, end: 202003
  2. TRAMETINIB [Suspect]
     Active Substance: TRAMETINIB
     Indication: Product used for unknown indication
     Dosage: 2 MG, QD
     Route: 065
     Dates: start: 201903, end: 202003

REACTIONS (3)
  - Malignant melanoma [Unknown]
  - Basal cell carcinoma [Unknown]
  - Hyperglycaemia [Unknown]

NARRATIVE: CASE EVENT DATE: 20200101
